FAERS Safety Report 9405772 (Version 1)
Quarter: 2013Q3

REPORT INFORMATION
  Report Type: Spontaneous
  Country: US (occurrence: US)
  Receive Date: 20130717
  Receipt Date: 20130717
  Transmission Date: 20140515
  Serious: No
  Sender: FDA-Public Use
  Company Number: US-BAYER-2013-083568

PATIENT
  Age: 81 Year
  Sex: Female
  Weight: 73.47 kg

DRUGS (4)
  1. BAYER ASPIRIN REGIMEN REGULAR 325 MG STRENGTH [Suspect]
     Indication: ARTHRITIS
     Dosage: 2 DF, PRN
     Route: 048
     Dates: start: 20130629, end: 20130629
  2. ALEVE CAPLET [Suspect]
     Dosage: 1 DF, ONCE
     Route: 048
  3. PREDNISONE [Concomitant]
  4. TYLENOL [PARACETAMOL] [Concomitant]

REACTIONS (4)
  - Burning sensation [Recovered/Resolved]
  - Chills [Recovered/Resolved]
  - Paraesthesia [Recovered/Resolved]
  - Abdominal discomfort [Recovered/Resolved]
